FAERS Safety Report 22147827 (Version 1)
Quarter: 2023Q1

REPORT INFORMATION
  Report Type: Spontaneous
  Country: IE (occurrence: IE)
  Receive Date: 20230328
  Receipt Date: 20230328
  Transmission Date: 20230417
  Serious: Yes (Other)
  Sender: FDA-Public Use
  Company Number: IE-LIPOMED-20190083

PATIENT
  Age: 37 Year
  Sex: Female

DRUGS (7)
  1. ALLOPURINOL [Suspect]
     Active Substance: ALLOPURINOL
     Indication: Product used for unknown indication
     Dosage: UNK
     Route: 065
  2. COTRIMOXAZOLE [Suspect]
     Active Substance: SULFAMETHOXAZOLE\TRIMETHOPRIM
     Indication: Product used for unknown indication
     Dosage: UNK
     Route: 065
  3. CLADRIBINE [Concomitant]
     Active Substance: CLADRIBINE
     Indication: Hairy cell leukaemia
     Dosage: 0.1 MG/KG QD, SINGLE 5 DAY COURSE 9 WK POSTPARTUM
     Route: 042
  4. CLADRIBINE [Concomitant]
     Active Substance: CLADRIBINE
     Indication: Acute febrile neutrophilic dermatosis
  5. PREDNISOLONE [Concomitant]
     Active Substance: PREDNISOLONE
     Indication: Immune thrombocytopenia
     Dosage: 20 MILLIGRAM, QD
     Route: 048
  6. Immunoglobulin [Concomitant]
     Indication: Immune thrombocytopenia
     Dosage: 70 GRAM 1 G/KG OF BOOKING WEIGHT (ONCE-ONLY DOSE)
     Route: 065
  7. IRON [Concomitant]
     Active Substance: IRON
     Indication: Serum ferritin decreased
     Dosage: UNK
     Route: 065

REACTIONS (4)
  - Drug ineffective [Unknown]
  - Febrile neutropenia [Recovered/Resolved]
  - Exposure during pregnancy [Unknown]
  - Rash erythematous [Recovered/Resolved]
